FAERS Safety Report 9231057 (Version 1)
Quarter: 2013Q2

REPORT INFORMATION
  Report Type: Spontaneous
  Country: IL (occurrence: IL)
  Receive Date: 20130415
  Receipt Date: 20130415
  Transmission Date: 20140414
  Serious: Yes (Hospitalization)
  Sender: FDA-Public Use
  Company Number: IL-ROCHE-1212685

PATIENT
  Age: 17 Year
  Sex: Female

DRUGS (2)
  1. CLONAZEPAM [Suspect]
     Indication: EPILEPSY
     Dosage: 9 DROPS
     Route: 048
     Dates: start: 20130311
  2. CLONAZEPAM [Suspect]
     Dosage: 10 DROPS
     Route: 048

REACTIONS (3)
  - Epilepsy [Recovered/Resolved]
  - Headache [Not Recovered/Not Resolved]
  - Fatigue [Not Recovered/Not Resolved]
